FAERS Safety Report 7998773-4 (Version None)
Quarter: 2011Q4

REPORT INFORMATION
  Report Type: 
  Country: None (occurrence: None)
  Receive Date: 20111221
  Receipt Date: 20111212
  Transmission Date: 20120403
  Serious: Yes (Hospitalization)
  Sender: FDA-Public Use
  Company Number: CA-ABBOTT-11P-028-0872621-00

PATIENT
  Sex: Male
  Weight: 114 kg

DRUGS (21)
  1. COMMERCIAL HUMIRA [Concomitant]
     Indication: PRODUCT USED FOR UNKNOWN INDICATION
     Dates: start: 20101021
  2. CRESTOR [Concomitant]
     Indication: HYPERCHOLESTEROLAEMIA
     Dates: start: 20080601
  3. VENTOLIN [Concomitant]
     Indication: CHRONIC OBSTRUCTIVE PULMONARY DISEASE
     Dates: start: 20061101
  4. SEREVENT [Concomitant]
     Indication: CHRONIC OBSTRUCTIVE PULMONARY DISEASE
     Dates: start: 20061101
  5. DESOCORT [Concomitant]
     Indication: PSORIASIS
     Dosage: 1 APPLICATION
     Dates: start: 20110414
  6. HUMIRA [Suspect]
     Indication: PSORIASIS
     Route: 058
     Dates: start: 20110414, end: 20111028
  7. DIOVAN HCT [Concomitant]
     Indication: HYPERTENSION
     Dates: start: 20090901
  8. NOVORAPID [Concomitant]
     Indication: DIABETES MELLITUS
     Dates: start: 20100223
  9. COLCHICINE [Concomitant]
     Indication: GOUT
     Dates: start: 20080601
  10. FUROSEMIDE [Concomitant]
     Indication: HYPERTENSION
     Dates: start: 20061201
  11. PRO-METFORMIN [Concomitant]
     Indication: DIABETES MELLITUS
     Dates: start: 20080301
  12. NEXIUM [Concomitant]
     Indication: DYSPEPSIA
     Dates: start: 20071101
  13. NEXIUM [Concomitant]
     Indication: PROPHYLAXIS
  14. CLOTRIMAZOLE [Concomitant]
     Indication: PSORIASIS
     Dosage: 1 APPLICATION
     Dates: start: 20110414
  15. AMLODIPINE [Concomitant]
     Indication: HYPERTENSION
     Dates: start: 20100223
  16. FLOVENT [Concomitant]
     Indication: CHRONIC OBSTRUCTIVE PULMONARY DISEASE
     Dosage: 1 INHALATION
     Route: 055
     Dates: start: 20080701
  17. SPIRIVA [Concomitant]
     Indication: CHRONIC OBSTRUCTIVE PULMONARY DISEASE
     Dates: start: 20071001
  18. FLONASE [Concomitant]
     Indication: CHRONIC OBSTRUCTIVE PULMONARY DISEASE
     Dates: start: 20100223
  19. ALLOPURINOL [Concomitant]
     Indication: GOUT
     Dates: start: 20080101
  20. ACETYLSALICYLIC ACID SRT [Concomitant]
     Indication: CARDIOVASCULAR EVENT PROPHYLAXIS
     Dates: start: 20070301
  21. INSULIN HUMAN [Concomitant]
     Indication: DIABETES MELLITUS
     Dates: start: 20090501

REACTIONS (1)
  - CELLULITIS [None]
